FAERS Safety Report 19709525 (Version 1)
Quarter: 2021Q3

REPORT INFORMATION
  Report Type: Spontaneous
  Country: DE (occurrence: DE)
  Receive Date: 20210817
  Receipt Date: 20210817
  Transmission Date: 20211014
  Serious: Yes (Hospitalization)
  Sender: FDA-Public Use
  Company Number: DE-MYLANLABS-2021M1050890

PATIENT
  Age: 79 Year
  Sex: Female

DRUGS (10)
  1. METAMIZOL                          /06276701/ [Concomitant]
     Active Substance: METAMIZOLE
     Dosage: 30?30?30?0, DROPS
  2. MAGNESIUM [Concomitant]
     Active Substance: MAGNESIUM
     Dosage: 400 MG / 3X A WEEK, TUE THU SUN, EFFERVESCENT TABLETS
  3. PAROXETINE. [Suspect]
     Active Substance: PAROXETINE
     Indication: PRODUCT USED FOR UNKNOWN INDICATION
     Dosage: 20 MG, 1?0?0?0, TABLET
  4. BISOPROLOL [Concomitant]
     Active Substance: BISOPROLOL
     Dosage: 5 MG, 0?0.5?0?0, TABLETTEN
  5. ACETYLSALICYLIC ACID [Suspect]
     Active Substance: ASPIRIN
     Indication: PRODUCT USED FOR UNKNOWN INDICATION
     Dosage: 100 MG, 1?0?1?0, TABLET
  6. TRAMADOL. [Concomitant]
     Active Substance: TRAMADOL
     Dosage: 0?0?1?0, RETARD?TABLETTEN
  7. PREGABALIN. [Concomitant]
     Active Substance: PREGABALIN
     Dosage: 25 MG, 1?0?1?0, CAPSULE
  8. EISEN                              /00023501/ [Concomitant]
     Active Substance: IRON
     Dosage: 100 MG, 0?1?0?0
  9. TRAMADOL. [Concomitant]
     Active Substance: TRAMADOL
     Dosage: REQUIRES 1 TBL Z N, SUSTAINED?RELEASE TABLETS
  10. TORASEMID [Concomitant]
     Active Substance: TORSEMIDE
     Dosage: 10 MG, 1?0?0?0, TABLET

REACTIONS (2)
  - Fatigue [Recovering/Resolving]
  - Anaemia [Recovering/Resolving]
